FAERS Safety Report 4312336-3 (Version None)
Quarter: 2004Q1

REPORT INFORMATION
  Report Type: 
  Country: None (occurrence: None)
  Receive Date: 20040303
  Receipt Date: 20040221
  Transmission Date: 20041129
  Serious: Yes (Hospitalization)
  Sender: FDA-Public Use
  Company Number: 2004004162

PATIENT
  Age: 69 Year
  Sex: Male
  Weight: 94.3482 kg

DRUGS (1)
  1. TIKOSYN [Suspect]
     Indication: ARRHYTHMIA
     Dosage: 500 MCG (BID), ORAL
     Route: 048
     Dates: start: 20040116

REACTIONS (3)
  - CREATININE RENAL CLEARANCE DECREASED [None]
  - DRUG EFFECT DECREASED [None]
  - MEDICATION ERROR [None]
